FAERS Safety Report 7273302-1 (Version None)
Quarter: 2011Q1

REPORT INFORMATION
  Report Type: 
  Country: None (occurrence: None)
  Receive Date: 20110203
  Receipt Date: 20101116
  Transmission Date: 20110831
  Serious: Yes (Other)
  Sender: FDA-Public Use
  Company Number: US-ABBOTT-10P-163-0685892-00

PATIENT
  Sex: Female

DRUGS (3)
  1. LAMICTAL [Suspect]
     Route: 048
  2. SYNTHROID [Suspect]
     Indication: PRODUCT USED FOR UNKNOWN INDICATION
  3. LAMICTAL [Suspect]
     Indication: EPILEPSY
     Dosage: LOW DOSE
     Route: 048

REACTIONS (1)
  - CONVULSION [None]
